FAERS Safety Report 9468897 (Version 1)
Quarter: 2013Q3

REPORT INFORMATION
  Report Type: Spontaneous
  Country: IE (occurrence: IE)
  Receive Date: 20130821
  Receipt Date: 20130821
  Transmission Date: 20140515
  Serious: Yes (Hospitalization, Other)
  Sender: FDA-Public Use
  Company Number: IE-ASTRAZENECA-2013SE63317

PATIENT
  Age: 90 Year
  Sex: Male

DRUGS (12)
  1. VIMOVO [Suspect]
     Indication: PAIN
     Dosage: 500/20 MG, TWO TIMES A DAY
     Route: 048
     Dates: start: 20130515
  2. WARFARIN (GENERIC) [Concomitant]
     Indication: CEREBROVASCULAR ACCIDENT PROPHYLAXIS
     Dosage: 1 OR 2 MG, UNKNOWN FREQUENCY
  3. WARFARIN (GENERIC) [Concomitant]
     Indication: ATRIAL FIBRILLATION
     Dosage: 1 OR 2 MG, UNKNOWN FREQUENCY
  4. FUROSEMIDE/ AMILORIDE (GENERIC) [Concomitant]
     Indication: DIURETIC THERAPY
     Dosage: 40 MG + 5 MG, DAILY
  5. LANOXIN PG [Concomitant]
  6. COMBODART [Concomitant]
     Indication: BENIGN PROSTATIC HYPERPLASIA
     Dosage: 0.4 MG + 0.5 MG TARDE, DAILY
  7. ATORVASTATIN (GENERIC) [Concomitant]
     Indication: HYPERLIPIDAEMIA
     Dosage: 10 MG TARDE, DAILY
  8. RAMIPRIL (GENERIC) [Concomitant]
     Indication: HYPERTENSION
  9. BUTRANS [Concomitant]
     Indication: PAIN
     Route: 062
  10. PARACETAMOL (GENERIC) [Concomitant]
     Indication: PAIN
     Dosage: UNKNOWN DOSE, EVERY 3-4 HOURS
  11. SALBUTAMOL (GENERIC) [Concomitant]
     Route: 055
  12. PROTON PUMP INHIBITOR [Concomitant]

REACTIONS (2)
  - Fall [Recovered/Resolved]
  - Blood sodium decreased [Recovered/Resolved]
